FAERS Safety Report 15095252 (Version 1)
Quarter: 2018Q3

REPORT INFORMATION
  Report Type: Report from Study
  Country: None (occurrence: DE)
  Receive Date: 20180702
  Receipt Date: 20180702
  Transmission Date: 20181010
  Serious: Yes (Disabling, Other)
  Sender: FDA-Public Use
  Company Number: DE-ABBVIE-18K-062-2402245-00

PATIENT
  Age: 37 Year
  Sex: Female

DRUGS (1)
  1. HUMIRA [Suspect]
     Active Substance: ADALIMUMAB
     Indication: CROHN^S DISEASE
     Route: 058
     Dates: start: 20100517

REACTIONS (4)
  - Sudden hearing loss [Recovering/Resolving]
  - Cerebrovascular accident [Recovering/Resolving]
  - Otitis media [Unknown]
  - Stress [Unknown]

NARRATIVE: CASE EVENT DATE: 20180511
